FAERS Safety Report 16979081 (Version 1)
Quarter: 2019Q4

REPORT INFORMATION
  Report Type: Spontaneous
  Country: US (occurrence: US)
  Receive Date: 20191031
  Receipt Date: 20191031
  Transmission Date: 20200122
  Serious: No
  Sender: FDA-Public Use
  Company Number: US-PFIZER INC-2019468062

PATIENT
  Sex: Male

DRUGS (3)
  1. LISINOPRIL. [Concomitant]
     Active Substance: LISINOPRIL
     Indication: HYPERTENSION
     Dosage: UNK, 1X/DAY (10MG OR 20MG DRINK WITH WATER ONCE A DAY)
  2. SILDENAFIL CITRATE. [Suspect]
     Active Substance: SILDENAFIL CITRATE
     Indication: ERECTILE DYSFUNCTION
     Dosage: 50 MG, LITTLE WHITE PILL MAY HAVE BEEN LESS THAN THAT AN HOUR BEFORE SEX TOOK IT WITH A LITTLE WATER
  3. AMLODIPINE [Concomitant]
     Active Substance: AMLODIPINE BESYLATE
     Indication: HYPERTENSION
     Dosage: 10 MG, 1X/DAY (DRINK WITH WATER AND A LITTLE SNACK)

REACTIONS (1)
  - Drug ineffective [Unknown]
